FAERS Safety Report 24107992 (Version 2)
Quarter: 2024Q3

REPORT INFORMATION
  Report Type: Spontaneous
  Country: EU (occurrence: EU)
  Receive Date: 20240718
  Receipt Date: 20240806
  Transmission Date: 20241016
  Serious: Yes (Other)
  Sender: OCTAPHARMA
  Company Number: PT-OCTA-LIT05124

PATIENT
  Age: 18 Year
  Sex: Male

DRUGS (3)
  1. HUMAN IMMUNOGLOBULIN G [Suspect]
     Active Substance: HUMAN IMMUNOGLOBULIN G
     Indication: Haemoglobin decreased
     Dosage: MASKED
     Route: 042
  2. METHYLPREDNISOLONE [Concomitant]
     Active Substance: METHYLPREDNISOLONE
     Indication: Warm autoimmune haemolytic anaemia
  3. FOLIC ACID [Concomitant]
     Active Substance: FOLIC ACID
     Indication: Warm autoimmune haemolytic anaemia

REACTIONS (1)
  - Pulmonary embolism [Unknown]
